FAERS Safety Report 5965065-4 (Version None)
Quarter: 2008Q4

REPORT INFORMATION
  Report Type: 
  Country: None (occurrence: None)
  Receive Date: 20081125
  Receipt Date: 20081117
  Transmission Date: 20090506
  Serious: Yes (Other)
  Sender: FDA-Public Use
  Company Number: PHBS2008DE06377

PATIENT

DRUGS (1)
  1. CYCLOSPORINE [Suspect]
     Indication: NEURODERMATITIS
     Dosage: 3-5 MG/KG/D
     Route: 048

REACTIONS (1)
  - EMBOLISM [None]
